FAERS Safety Report 24739483 (Version 1)
Quarter: 2024Q4

REPORT INFORMATION
  Report Type: Spontaneous
  Country: US (occurrence: None)
  Receive Date: 20241216
  Receipt Date: 20241216
  Transmission Date: 20250115
  Serious: Yes (Hospitalization)
  Sender: Public
  Company Number: None

PATIENT
  Age: 77 Year
  Sex: Male
  Weight: 95 kg

DRUGS (1)
  1. SULFAMETHOXAZOLE\TRIMETHOPRIM [Suspect]
     Active Substance: SULFAMETHOXAZOLE\TRIMETHOPRIM
     Dosage: FREQUENCY : TWICE A DAY;?
     Route: 048
     Dates: start: 20241030, end: 20241102

REACTIONS (3)
  - Eosinophilia [None]
  - Rash [None]
  - Urinary tract infection [None]

NARRATIVE: CASE EVENT DATE: 20241106
